FAERS Safety Report 8220514-6 (Version None)
Quarter: 2012Q1

REPORT INFORMATION
  Report Type: 
  Country: None (occurrence: None)
  Receive Date: 20120320
  Receipt Date: 20120312
  Transmission Date: 20120608
  Serious: Yes (Hospitalization)
  Sender: FDA-Public Use
  Company Number: US-BAYER-2011-075408

PATIENT
  Age: 22 Year
  Sex: Female
  Weight: 102.95 kg

DRUGS (2)
  1. DROSPIRENONE AND ETHINYL ESTRADIOL [Suspect]
     Indication: CONTRACEPTION
     Dosage: UNK
     Dates: start: 20060101, end: 20080101
  2. YAZ [Suspect]
     Indication: CONTRACEPTION
     Dosage: UNK
     Dates: start: 20060101, end: 20080101

REACTIONS (5)
  - CHOLECYSTECTOMY [None]
  - CHEST PAIN [None]
  - CHOLECYSTITIS CHRONIC [None]
  - PAIN [None]
  - PANCREATITIS [None]
